FAERS Safety Report 25933789 (Version 1)
Quarter: 2025Q4

REPORT INFORMATION
  Report Type: Spontaneous
  Country: US (occurrence: US)
  Receive Date: 20251017
  Receipt Date: 20251017
  Transmission Date: 20260118
  Serious: Yes (Death, Life-Threatening, Other)
  Sender: BAXTER
  Company Number: US-BAXTER-2025BAX022623

PATIENT
  Age: 71 Year
  Sex: Male
  Weight: 88 kg

DRUGS (2)
  1. CYCLOPHOSPHAMIDE [Suspect]
     Active Substance: CYCLOPHOSPHAMIDE
     Indication: Lymphodepletion
     Dosage: PER PROTOCOL, IV INFUSION
     Route: 042
     Dates: start: 20240307, end: 20240309
  2. FLUDARABINE [Suspect]
     Active Substance: FLUDARABINE PHOSPHATE
     Indication: Lymphodepletion
     Dosage: INTRAVENOUS INFUSION, PER PROTOCOL
     Route: 042
     Dates: start: 20240306, end: 20240309

REACTIONS (1)
  - Death [Fatal]

NARRATIVE: CASE EVENT DATE: 20251001
